FAERS Safety Report 6155870-6 (Version None)
Quarter: 2009Q2

REPORT INFORMATION
  Report Type: 
  Country: None (occurrence: None)
  Receive Date: 20090413
  Receipt Date: 20090413
  Transmission Date: 20091009
  Serious: Yes (Life-Threatening, Hospitalization)
  Sender: FDA-Public Use
  Company Number: None

PATIENT
  Age: 72 Year
  Sex: Male

DRUGS (16)
  1. GLIPIZIDE AND METFORMIN HCL [Suspect]
     Indication: DIABETES MELLITUS
     Dosage: 5 MG BID PO
     Route: 048
     Dates: start: 20081119, end: 20090224
  2. SULFAMETHOXAZOLE AND TRIMETHOPRIM [Suspect]
     Indication: ABSCESS
     Dosage: 1 TAB BID PO
     Route: 048
     Dates: start: 20090211, end: 20090221
  3. ASPIRIN [Concomitant]
  4. DOCUSATE NA [Concomitant]
  5. DORZOLAMIDE 2/TIMOLOL [Concomitant]
  6. GLIPIZIDE [Concomitant]
  7. HYDROCHLOROTHIAZIDE [Concomitant]
  8. LISINOPRIL [Concomitant]
  9. MEDROXYPROGESTERONE [Concomitant]
  10. METFORMIN HCL [Concomitant]
  11. OLANZAPINE [Concomitant]
  12. SIMVASTATIN [Concomitant]
  13. SULFAMETHOXAZOLE AND TRIMETHOPRIM DOUBLE STRENGTH [Concomitant]
  14. THERAPEUTIC VITAMIN LIQUID [Concomitant]
  15. TRAVOPROST [Concomitant]
  16. TRAZODONE HCL [Concomitant]

REACTIONS (5)
  - ACIDOSIS [None]
  - ELECTROCARDIOGRAM T WAVE PEAKED [None]
  - HYPERKALAEMIA [None]
  - HYPOGLYCAEMIA [None]
  - RENAL FAILURE ACUTE [None]
